FAERS Safety Report 24414594 (Version 1)
Quarter: 2024Q4

REPORT INFORMATION
  Report Type: Spontaneous
  Country: US (occurrence: US)
  Receive Date: 20241009
  Receipt Date: 20241009
  Transmission Date: 20250114
  Serious: Yes (Hospitalization, Other)
  Sender: CIPLA
  Company Number: US-CIPLA LTD.-2024US11148

PATIENT

DRUGS (1)
  1. CYCLOBENZAPRINE [Suspect]
     Active Substance: CYCLOBENZAPRINE
     Indication: Back pain
     Dosage: UNK
     Route: 065

REACTIONS (1)
  - Distributive shock [Recovering/Resolving]
